FAERS Safety Report 21234725 (Version 1)
Quarter: 2022Q3

REPORT INFORMATION
  Report Type: Spontaneous
  Country: DE (occurrence: DE)
  Receive Date: 20220820
  Receipt Date: 20220820
  Transmission Date: 20221027
  Serious: Yes (Death, Other)
  Sender: FDA-Public Use
  Company Number: DE-INCYTE CORPORATION-2022IN006494

PATIENT
  Age: 64 Year
  Sex: Female

DRUGS (2)
  1. LENALIDOMIDE [Suspect]
     Active Substance: LENALIDOMIDE
     Indication: Diffuse large B-cell lymphoma refractory
     Dosage: 25 MILLIGRAM DAILY; 25 MILLIGRAM, QD, THERAPY END DATE : NOT ASKED
     Dates: start: 20210924
  2. TAFASITAMAB [Suspect]
     Active Substance: TAFASITAMAB
     Indication: Diffuse large B-cell lymphoma refractory
     Dosage: 12 MILLIGRAM/KILOGRAM, QD, THERAPY END DATE : NOT ASKED
     Dates: start: 20210924

REACTIONS (2)
  - Disease progression [Fatal]
  - Diffuse large B-cell lymphoma [Fatal]
